FAERS Safety Report 10389667 (Version 2)
Quarter: 2015Q1

REPORT INFORMATION
  Report Type: Spontaneous
  Country: US (occurrence: None)
  Receive Date: 20140813
  Receipt Date: 20150204
  Transmission Date: 20150720
  Serious: Yes (Hospitalization)
  Sender: FDA-Public Use
  Company Number: UCM201408-000144

PATIENT
  Age: 40 Year
  Sex: Female

DRUGS (3)
  1. LEVETIRACETAM. [Concomitant]
     Active Substance: LEVETIRACETAM
  2. DIVALPROEX SODIUM. [Suspect]
     Active Substance: DIVALPROEX SODIUM
     Indication: MANIA
     Route: 040
  3. PHENYTOIN (PHENYTOIN) [Concomitant]
     Active Substance: PHENYTOIN

REACTIONS (7)
  - Mental status changes [None]
  - Coma [None]
  - Metabolic encephalopathy [None]
  - Hyperammonaemia [None]
  - Respiratory alkalosis [None]
  - Antipsychotic drug level decreased [None]
  - Stupor [None]
